FAERS Safety Report 8073316-8 (Version None)
Quarter: 2012Q1

REPORT INFORMATION
  Report Type: 
  Country: None (occurrence: None)
  Receive Date: 20120126
  Receipt Date: 20120117
  Transmission Date: 20120608
  Serious: Yes (Other)
  Sender: FDA-Public Use
  Company Number: US-ABBOTT-12P-163-0894433-00

PATIENT
  Sex: Male
  Weight: 74.91 kg

DRUGS (2)
  1. MULTI-VITAMIN [Concomitant]
     Indication: VITAMIN SUPPLEMENTATION
  2. HUMIRA [Suspect]
     Indication: CROHN'S DISEASE
     Dates: start: 20111001, end: 20111225

REACTIONS (14)
  - DYSPEPSIA [None]
  - CARDIAC FLUTTER [None]
  - NASAL CONGESTION [None]
  - ELECTROCARDIOGRAM ABNORMAL [None]
  - ARRHYTHMIA [None]
  - BRONCHITIS [None]
  - ABDOMINAL PAIN [None]
  - ABDOMINAL DISTENSION [None]
  - CONSTIPATION [None]
  - SINUS CONGESTION [None]
  - CHEST PAIN [None]
  - PALPITATIONS [None]
  - PERICARDITIS [None]
  - UPPER RESPIRATORY TRACT CONGESTION [None]
